FAERS Safety Report 10159435 (Version 2)
Quarter: 2014Q2

REPORT INFORMATION
  Report Type: Report from Study
  Country: RO (occurrence: RO)
  Receive Date: 20140508
  Receipt Date: 20140508
  Transmission Date: 20141212
  Serious: Yes (Hospitalization)
  Sender: FDA-Public Use
  Company Number: RO-ELI_LILLY_AND_COMPANY-RO201403007955

PATIENT
  Age: 45 Year
  Sex: Male
  Weight: 63.3 kg

DRUGS (5)
  1. OLANZAPINE LONG-ACTING IM [Suspect]
     Indication: SCHIZOPHRENIA
     Dosage: 210 MG, EVERY 2 WEEKS
     Route: 030
     Dates: start: 20111014, end: 20131230
  2. ORFIRIL [Concomitant]
     Indication: MOOD ALTERED
     Dosage: UNK
     Route: 065
     Dates: start: 201101
  3. ORFIRIL [Concomitant]
     Dosage: 1000 MG, QD
     Route: 065
     Dates: start: 201401
  4. LEVOMEPROMAZINE [Concomitant]
     Indication: SEDATION
     Dosage: UNK
     Route: 065
     Dates: start: 2000
  5. LEVOMEPROMAZINE [Concomitant]
     Indication: NERVOUS SYSTEM DISORDER
     Dosage: 50 MG, QD
     Route: 065
     Dates: start: 201401

REACTIONS (3)
  - Insomnia [Recovered/Resolved]
  - Restlessness [Recovered/Resolved]
  - Delusion [Recovered/Resolved]
